FAERS Safety Report 4658392-4 (Version None)
Quarter: 2005Q2

REPORT INFORMATION
  Report Type: 
  Country: None (occurrence: None)
  Receive Date: 20050509
  Receipt Date: 20050426
  Transmission Date: 20051028
  Serious: Yes (Hospitalization)
  Sender: FDA-Public Use
  Company Number: 2005066761

PATIENT
  Age: 67 Year
  Sex: Female
  Weight: 68.0396 kg

DRUGS (6)
  1. BEXTRA [Suspect]
     Indication: OSTEOARTHRITIS
     Dosage: 1 IN 1 D, ORAL
     Route: 048
     Dates: start: 20020101, end: 20040101
  2. CENTURM SILVER (ASCORBIC ACID, CALCIUM, MINERALS NOS, RETINOL, TOCOPHE [Concomitant]
  3. LEVOTHYROXINE SODIUM [Concomitant]
  4. LOVASTATIN [Concomitant]
  5. ASPIRIN [Concomitant]
  6. GLUCOSAMINE W/CHONDROITIN SULFATES (ASCORBIC ACID, CHONDROITIN SULFATE [Concomitant]

REACTIONS (7)
  - ABDOMINAL PAIN UPPER [None]
  - CHEST DISCOMFORT [None]
  - CORONARY ARTERY OCCLUSION [None]
  - GALLBLADDER OPERATION [None]
  - HYPERTENSION [None]
  - INCORRECT DOSE ADMINISTERED [None]
  - OSTEOPENIA [None]
